FAERS Safety Report 25196128 (Version 2)
Quarter: 2025Q2

REPORT INFORMATION
  Report Type: Spontaneous
  Country: JP (occurrence: JP)
  Receive Date: 20250415
  Receipt Date: 20250418
  Transmission Date: 20250717
  Serious: Yes (Other)
  Sender: SANOFI AVENTIS
  Company Number: JP-MLMSERVICE-20250403-PI467446-00249-1

PATIENT
  Age: 77 Year
  Sex: Female

DRUGS (3)
  1. OXALIPLATIN [Suspect]
     Active Substance: OXALIPLATIN
     Indication: Gastric cancer stage IV
  2. TS-1 [Concomitant]
     Active Substance: GIMERACIL\OTERACIL POTASSIUM\TEGAFUR
     Indication: Gastric cancer stage IV
  3. NIVOLUMAB [Concomitant]
     Active Substance: NIVOLUMAB
     Indication: Gastric cancer stage IV

REACTIONS (7)
  - Portal shunt [Recovered/Resolved]
  - Off label use [Recovered/Resolved]
  - Hyperammonaemia [Recovering/Resolving]
  - Venoocclusive liver disease [Unknown]
  - Thrombocytopenia [Unknown]
  - Portal hypertension [Unknown]
  - Splenomegaly [Unknown]
